FAERS Safety Report 10516902 (Version 1)
Quarter: 2014Q4

REPORT INFORMATION
  Report Type: Spontaneous
  Country: US (occurrence: None)
  Receive Date: 20141003
  Receipt Date: 20141003
  Transmission Date: 20150528
  Serious: Yes (Hospitalization)
  Sender: FDA-Public Use
  Company Number: 1329339

PATIENT
  Age: 58 Year
  Sex: Male

DRUGS (3)
  1. RIBAVIRIN (RIBAVIRIN) [Suspect]
     Active Substance: RIBAVIRIN
     Indication: CHRONIC HEPATITIS C
     Dosage: FREQUENCY-DAILY IN TWO DIVIDED DOSES
     Route: 048
     Dates: start: 20120802, end: 201311
  2. ACETAMINOPHEN (PARACETAMOL) [Concomitant]
     Active Substance: ACETAMINOPHEN
  3. PEGASYS [Suspect]
     Active Substance: PEGINTERFERON ALFA-2A
     Indication: CHRONIC HEPATITIS C
     Route: 058
     Dates: start: 20120802, end: 201311

REACTIONS (19)
  - Osteoporosis [None]
  - Viral infection [None]
  - Dyspnoea [None]
  - Vomiting [None]
  - Testicular mass [None]
  - Weight increased [None]
  - Productive cough [None]
  - Oxygen saturation decreased [None]
  - Abdominal pain [None]
  - Viral load increased [None]
  - Respiratory distress [None]
  - Visual acuity reduced [None]
  - Headache [None]
  - Gallbladder enlargement [None]
  - Fluid retention [None]
  - Hair colour changes [None]
  - Bacterial infection [None]
  - Pain [None]
  - Dry eye [None]

NARRATIVE: CASE EVENT DATE: 201311
